FAERS Safety Report 9127362 (Version 3)
Quarter: 2013Q2

REPORT INFORMATION
  Report Type: Spontaneous
  Country: US (occurrence: US)
  Receive Date: 20130228
  Receipt Date: 20130521
  Transmission Date: 20140414
  Serious: Yes (Hospitalization)
  Sender: FDA-Public Use
  Company Number: US-CELGENEUS-163-21880-12120198

PATIENT
  Age: 72 Year
  Sex: Male
  Weight: 82.2 kg

DRUGS (75)
  1. REVLIMID [Suspect]
     Indication: PLASMA CELL MYELOMA
     Dosage: 25 MILLIGRAM
     Route: 048
     Dates: start: 20120405, end: 20121018
  2. ELOTUZUMAB [Suspect]
     Indication: PLASMA CELL MYELOMA
     Dosage: 10 MILLIGRAM
     Route: 041
     Dates: start: 20120405, end: 20121101
  3. DEXAMETHASONE [Suspect]
     Indication: PLASMA CELL MYELOMA
     Dosage: 8 MILLIGRAM
     Route: 041
     Dates: start: 20120405, end: 20121101
  4. DEXAMETHASONE [Suspect]
     Route: 048
     Dates: start: 20120405, end: 20121108
  5. DEXAMETHASONE [Suspect]
     Route: 048
     Dates: start: 20121207, end: 20121207
  6. DEXAMETHASONE [Suspect]
     Route: 048
     Dates: start: 20120116, end: 20130116
  7. PRBC [Concomitant]
     Indication: PRODUCT USED FOR UNKNOWN INDICATION
     Route: 041
     Dates: start: 2012, end: 2012
  8. PRBC [Concomitant]
     Route: 041
     Dates: start: 2012, end: 2012
  9. PRBC [Concomitant]
     Route: 041
     Dates: start: 2012, end: 2012
  10. HYDROCORTISONE [Concomitant]
     Indication: ADVERSE EVENT
     Route: 065
     Dates: start: 20120507, end: 20120524
  11. POTASSIUM CHLORIDE [Concomitant]
     Indication: ADVERSE EVENT
     Route: 065
     Dates: start: 20120419, end: 20120419
  12. POTASSIUM CHLORIDE [Concomitant]
     Route: 065
     Dates: start: 20121128
  13. COLACE [Concomitant]
     Indication: ADVERSE EVENT
     Route: 065
     Dates: start: 20120419, end: 20120510
  14. LOPERAMIDE [Concomitant]
     Indication: ADVERSE EVENT
     Route: 065
     Dates: start: 20120415, end: 20120419
  15. LOPERAMIDE [Concomitant]
     Dosage: 6 MILLIGRAM
     Route: 065
     Dates: start: 20130130
  16. LIDOCAINE [Concomitant]
     Indication: PRODUCT USED FOR UNKNOWN INDICATION
     Route: 065
     Dates: start: 20120328, end: 20120328
  17. LIDOCAINE [Concomitant]
     Route: 065
     Dates: start: 20121003, end: 20121003
  18. LIDOCAINE [Concomitant]
     Route: 065
     Dates: start: 20121126, end: 20121126
  19. LIDOCAINE [Concomitant]
     Route: 065
     Dates: start: 20121207, end: 20121207
  20. WARFARIN [Concomitant]
     Indication: PRODUCT USED FOR UNKNOWN INDICATION
     Route: 065
     Dates: start: 20120111, end: 20120906
  21. TAMSULOSIN [Concomitant]
     Indication: PRODUCT USED FOR UNKNOWN INDICATION
     Route: 065
     Dates: start: 20111221, end: 20121210
  22. NIFEDIPINE [Concomitant]
     Indication: PRODUCT USED FOR UNKNOWN INDICATION
     Route: 065
     Dates: start: 20110511
  23. VICODIN [Concomitant]
     Indication: PRODUCT USED FOR UNKNOWN INDICATION
     Route: 065
     Dates: start: 20120323, end: 20120503
  24. CALCIUM CARBONATE [Concomitant]
     Indication: PRODUCT USED FOR UNKNOWN INDICATION
     Route: 065
     Dates: start: 20111219
  25. ATENOLOL [Concomitant]
     Indication: PRODUCT USED FOR UNKNOWN INDICATION
     Route: 065
     Dates: start: 20110511
  26. ALLOPURINOL [Concomitant]
     Indication: PRODUCT USED FOR UNKNOWN INDICATION
     Route: 065
     Dates: start: 20110511, end: 20121206
  27. ALLOPURINOL [Concomitant]
     Route: 065
     Dates: start: 20111218, end: 20121125
  28. ALLOPURINOL [Concomitant]
     Route: 065
     Dates: start: 20121209, end: 20121214
  29. ACYCLOVIR [Concomitant]
     Indication: PRODUCT USED FOR UNKNOWN INDICATION
     Route: 065
     Dates: start: 20111207
  30. NEULASTA [Concomitant]
     Indication: ADVERSE EVENT
     Route: 065
     Dates: start: 20120823, end: 20121019
  31. NEULASTA [Concomitant]
     Route: 065
     Dates: start: 20121214
  32. TOPICORT [Concomitant]
     Indication: ADVERSE EVENT
     Route: 065
     Dates: start: 20120524, end: 20121207
  33. ARANESP [Concomitant]
     Indication: PRODUCT USED FOR UNKNOWN INDICATION
     Route: 065
     Dates: start: 20120823
  34. BACTRIM [Concomitant]
     Indication: PRODUCT USED FOR UNKNOWN INDICATION
     Route: 065
     Dates: start: 20111222, end: 20120606
  35. ASPIRIN [Concomitant]
     Indication: PRODUCT USED FOR UNKNOWN INDICATION
     Route: 065
     Dates: start: 20120320, end: 20121125
  36. ZOCOR [Concomitant]
     Indication: PRODUCT USED FOR UNKNOWN INDICATION
     Route: 065
     Dates: start: 20110511, end: 20121207
  37. MEPERIDINE [Concomitant]
     Indication: PRODUCT USED FOR UNKNOWN INDICATION
     Route: 065
     Dates: start: 20121003, end: 20121003
  38. MIDAZOLAM [Concomitant]
     Indication: PRODUCT USED FOR UNKNOWN INDICATION
     Route: 041
     Dates: start: 20121003, end: 20121003
  39. MIDAZOLAM [Concomitant]
     Route: 041
     Dates: start: 20121208, end: 20121212
  40. SENNA [Concomitant]
     Indication: ADVERSE EVENT
     Route: 065
     Dates: start: 20121125
  41. FUROSEMIDE [Concomitant]
     Indication: ADVERSE EVENT
     Route: 065
     Dates: start: 20121115, end: 20121208
  42. FUROSEMIDE [Concomitant]
     Route: 065
     Dates: start: 20121209, end: 20130109
  43. FUROSEMIDE [Concomitant]
     Dosage: 40 MILLIGRAM
     Route: 065
     Dates: start: 20130122
  44. FUROSEMIDE [Concomitant]
     Route: 065
     Dates: start: 20120929, end: 20120929
  45. ZOFRAN [Concomitant]
     Indication: PRODUCT USED FOR UNKNOWN INDICATION
     Route: 065
     Dates: start: 20121211
  46. CIPROFLOXACIN [Concomitant]
     Indication: PRODUCT USED FOR UNKNOWN INDICATION
     Route: 065
     Dates: start: 20121211, end: 20121221
  47. CIPROFLOXACIN [Concomitant]
     Route: 065
     Dates: start: 20130109
  48. FLUCANOZOLE [Concomitant]
     Indication: PRODUCT USED FOR UNKNOWN INDICATION
     Route: 065
     Dates: start: 20121211
  49. FLAGYL [Concomitant]
     Indication: PRODUCT USED FOR UNKNOWN INDICATION
     Route: 065
     Dates: start: 20121205, end: 20121219
  50. MAGNESIUM SULFATE [Concomitant]
     Indication: PRODUCT USED FOR UNKNOWN INDICATION
     Route: 065
     Dates: start: 20121207, end: 20121214
  51. MAGNESIUM SULFATE [Concomitant]
     Route: 065
     Dates: start: 20130130
  52. VELCADE [Concomitant]
     Indication: PRODUCT USED FOR UNKNOWN INDICATION
     Route: 065
     Dates: start: 20121207, end: 20121207
  53. VELCADE [Concomitant]
     Route: 065
     Dates: start: 20121208, end: 20121212
  54. VELCADE [Concomitant]
     Route: 065
     Dates: start: 20130116, end: 20130116
  55. CISPLATIN [Concomitant]
     Indication: PRODUCT USED FOR UNKNOWN INDICATION
     Route: 065
     Dates: start: 20121207, end: 20121207
  56. CISPLATIN [Concomitant]
     Route: 065
     Dates: start: 20121208, end: 20121212
  57. CISPLATIN [Concomitant]
     Route: 065
     Dates: start: 20130116, end: 20130116
  58. DOXORUBICIN [Concomitant]
     Indication: PRODUCT USED FOR UNKNOWN INDICATION
     Route: 065
     Dates: start: 20121208, end: 20121212
  59. DOXORUBICIN [Concomitant]
     Route: 065
     Dates: start: 20130116, end: 20130116
  60. AMBIEN [Concomitant]
     Indication: PRODUCT USED FOR UNKNOWN INDICATION
     Route: 065
     Dates: start: 20121208, end: 20121214
  61. MAALOX [Concomitant]
     Indication: PRODUCT USED FOR UNKNOWN INDICATION
     Dosage: 30 MILLILITER
     Route: 048
     Dates: start: 20121208, end: 20121214
  62. ACETAMINOPHEN [Concomitant]
     Indication: PRODUCT USED FOR UNKNOWN INDICATION
     Route: 048
     Dates: start: 20120929, end: 20120929
  63. ACETAMINOPHEN [Concomitant]
     Route: 048
     Dates: start: 20121208, end: 20121214
  64. BENADRYL [Concomitant]
     Indication: PRODUCT USED FOR UNKNOWN INDICATION
     Dosage: 25 MILLIGRAM
     Route: 048
     Dates: start: 20120929, end: 20120929
  65. BENADRYL [Concomitant]
     Dosage: 25 MILLIGRAM
     Route: 048
     Dates: start: 20121208, end: 20121208
  66. BENADRYL [Concomitant]
     Dosage: 25MG-50MG
     Route: 041
     Dates: start: 20121208, end: 20121208
  67. FENTANYL [Concomitant]
     Indication: PRODUCT USED FOR UNKNOWN INDICATION
     Route: 041
     Dates: start: 20121208, end: 20121212
  68. KAYEXALATE [Concomitant]
     Indication: PRODUCT USED FOR UNKNOWN INDICATION
     Route: 065
     Dates: start: 201212, end: 201212
  69. KAYEXALATE [Concomitant]
     Route: 065
     Dates: start: 20130109, end: 20130109
  70. ENSURE [Concomitant]
     Indication: ADVERSE EVENT
     Route: 065
     Dates: start: 20120920
  71. ALUMINUM AND MAGNESIUM HYDROXIDE/SIMETHICONE [Concomitant]
     Indication: PRODUCT USED FOR UNKNOWN INDICATION
     Route: 065
     Dates: start: 20121208, end: 20121214
  72. ETOPOSIDE [Concomitant]
     Indication: PRODUCT USED FOR UNKNOWN INDICATION
     Route: 065
     Dates: start: 20121207, end: 20121207
  73. ETOPOSIDE [Concomitant]
     Route: 065
     Dates: start: 20130116, end: 20130116
  74. CYCLOPHOSPHAMIDE [Concomitant]
     Indication: PRODUCT USED FOR UNKNOWN INDICATION
     Route: 065
     Dates: start: 20121207, end: 20121207
  75. CYCLOPHOSPHAMIDE [Concomitant]
     Route: 065
     Dates: start: 20130116, end: 20130116

REACTIONS (2)
  - Malignant pleural effusion [Recovered/Resolved]
  - Plasmacytoma [Recovered/Resolved with Sequelae]
